FAERS Safety Report 6698605-0 (Version None)
Quarter: 2010Q2

REPORT INFORMATION
  Report Type: 
  Country: None (occurrence: None)
  Receive Date: 20100427
  Receipt Date: 20100415
  Transmission Date: 20101027
  Serious: Yes (Other)
  Sender: FDA-Public Use
  Company Number: BR-PFIZER INC-2010047557

PATIENT
  Age: 38 Year
  Sex: Female
  Weight: 73 kg

DRUGS (6)
  1. LYRICA [Suspect]
     Indication: MUSCULOSKELETAL PAIN
     Dosage: 75 MG, 2X/DAY (EVERY 12 HOURS)
     Route: 048
     Dates: start: 20100201
  2. LYRICA [Suspect]
     Indication: FIBROMYALGIA
     Dosage: 75 MG, 1X/DAY
     Route: 048
     Dates: end: 20100101
  3. NEULEPTIL [Concomitant]
     Indication: SLEEP DISORDER
     Dosage: UNK
  4. AMOXICILLIN [Concomitant]
     Indication: SINUSITIS
     Dosage: UNK
  5. LORATADINE [Concomitant]
     Indication: SINUSITIS
     Dosage: UNK
  6. CALCIUM CITRATE/COLECALCIFEROL [Concomitant]
     Indication: OSTEOPOROSIS
     Dosage: UNK

REACTIONS (14)
  - ACNE [None]
  - AGITATION [None]
  - ANXIETY [None]
  - APHONIA [None]
  - DYSGRAPHIA [None]
  - EAR INFECTION [None]
  - GASTROOESOPHAGEAL REFLUX DISEASE [None]
  - HYPERSENSITIVITY [None]
  - IRRITABILITY [None]
  - LOGORRHOEA [None]
  - MEMORY IMPAIRMENT [None]
  - MOOD ALTERED [None]
  - PHARYNGITIS [None]
  - SKIN EXFOLIATION [None]
